FAERS Safety Report 8805367 (Version 1)
Quarter: 2012Q4

REPORT INFORMATION
  Report Type: 
  Country: PE (occurrence: PE)
  Receive Date: 20120924
  Receipt Date: 20120924
  Transmission Date: 20130627
  Serious: Yes (Death, Other)
  Sender: FDA-Public Use
  Company Number: PHHO2005PE04903

PATIENT
  Age: 48 Year
  Sex: Male

DRUGS (3)
  1. GLIVEC [Suspect]
     Indication: CHRONIC MYELOID LEUKAEMIA
     Dosage: 400 mg, QD
     Route: 048
     Dates: start: 20040916, end: 20050130
  2. GLIVEC [Suspect]
     Dosage: 300 mg, QD
     Route: 048
     Dates: start: 20050131, end: 20050217
  3. GLIVEC [Suspect]
     Dosage: 600 mg, QD
     Route: 048
     Dates: start: 200502

REACTIONS (11)
  - Sepsis [Fatal]
  - Neurological symptom [Fatal]
  - Leukocytosis [Unknown]
  - Laryngeal discomfort [Unknown]
  - Gingival bleeding [Unknown]
  - Thrombocytopenia [Unknown]
  - Leukopenia [Unknown]
  - Anaemia [Unknown]
  - Pyrexia [Unknown]
  - Blast crisis in myelogenous leukaemia [Unknown]
  - Drug ineffective [Unknown]
